FAERS Safety Report 14741979 (Version 1)
Quarter: 2018Q2

REPORT INFORMATION
  Report Type: Spontaneous
  Country: US (occurrence: US)
  Receive Date: 20180410
  Receipt Date: 20180410
  Transmission Date: 20180711
  Serious: No
  Sender: FDA-Public Use
  Company Number: US-BAYER-2018-069142

PATIENT
  Age: 22 Year
  Sex: Female

DRUGS (2)
  1. ULTRAVIST [Suspect]
     Active Substance: IOPROMIDE
     Indication: COMPUTERISED TOMOGRAM PELVIS
     Dosage: 100 ML, ONCE
     Route: 042
  2. ULTRAVIST [Suspect]
     Active Substance: IOPROMIDE
     Indication: ABDOMINAL PAIN

REACTIONS (6)
  - Feeling hot [None]
  - Swelling [None]
  - Dyspnoea [None]
  - Vomiting [None]
  - Anxiety [None]
  - Headache [None]

NARRATIVE: CASE EVENT DATE: 20180314
